FAERS Safety Report 4482466-4 (Version None)
Quarter: 2004Q4

REPORT INFORMATION
  Report Type: 
  Country: None (occurrence: None)
  Receive Date: 20041022
  Receipt Date: 20040920
  Transmission Date: 20050328
  Serious: Yes (Other)
  Sender: FDA-Public Use
  Company Number: GB-GLAXOSMITHKLINE-B0346043A

PATIENT
  Age: 78 Year
  Sex: Male

DRUGS (3)
  1. REQUIP [Suspect]
     Indication: PARKINSON'S DISEASE
     Dosage: 9MG PER DAY
     Route: 048
     Dates: start: 20040803
  2. MADOPAR [Concomitant]
     Indication: PARKINSON'S DISEASE
     Dosage: 125MG FOUR TIMES PER DAY
     Route: 048
  3. ASPIRIN DISPRIN [Concomitant]
     Dosage: 150MG PER DAY
     Route: 048

REACTIONS (9)
  - APHASIA [None]
  - ASTHENIA [None]
  - CONVULSION [None]
  - DIZZINESS [None]
  - DIZZINESS POSTURAL [None]
  - DYSPHASIA [None]
  - IMMOBILE [None]
  - THERAPY NON-RESPONDER [None]
  - TRANSIENT ISCHAEMIC ATTACK [None]
